FAERS Safety Report 22105457 (Version 2)
Quarter: 2023Q2

REPORT INFORMATION
  Report Type: Spontaneous
  Country: AT (occurrence: AT)
  Receive Date: 20230317
  Receipt Date: 20230421
  Transmission Date: 20230721
  Serious: Yes (Other)
  Sender: FDA-Public Use
  Company Number: AT-002147023-NVSC2023AT058265

PATIENT
  Age: 46 Year
  Sex: Female

DRUGS (7)
  1. LETROZOLE [Suspect]
     Active Substance: LETROZOLE
     Indication: Breast cancer metastatic
     Dosage: 2.5 MG, QD
     Route: 048
     Dates: start: 202010, end: 202203
  2. GOSERELIN [Suspect]
     Active Substance: GOSERELIN
     Indication: Breast cancer metastatic
     Dosage: 3.6 MG, Q4W
     Route: 058
     Dates: start: 202010, end: 202303
  3. PALBOCICLIB [Suspect]
     Active Substance: PALBOCICLIB
     Indication: Breast cancer metastatic
     Dosage: 125 MG, QD
     Route: 048
     Dates: start: 202010, end: 202208
  4. ABEMACICLIB [Concomitant]
     Active Substance: ABEMACICLIB
     Indication: Breast cancer metastatic
     Dosage: UNK
     Route: 065
     Dates: start: 202208
  5. VITAMINS WITH MINERALS [Concomitant]
     Active Substance: MINERALS\VITAMINS
     Indication: Product used for unknown indication
     Dosage: UNK, QD
     Route: 048
  6. PASPERTIN [Concomitant]
     Indication: Nausea
     Dosage: UNK, PRN
     Route: 048
  7. LOPERAMIDE HYDROCHLORIDE [Concomitant]
     Active Substance: LOPERAMIDE HYDROCHLORIDE
     Indication: Diarrhoea
     Dosage: UNK, PRN
     Route: 048
     Dates: start: 202208

REACTIONS (4)
  - Tumour marker increased [Unknown]
  - Metastases to liver [Unknown]
  - Breast cancer metastatic [Not Recovered/Not Resolved]
  - Malignant neoplasm progression [Not Recovered/Not Resolved]

NARRATIVE: CASE EVENT DATE: 20230302
